FAERS Safety Report 9324019 (Version 1)
Quarter: 2013Q2

REPORT INFORMATION
  Report Type: Spontaneous
  Country: US (occurrence: US)
  Receive Date: 20130603
  Receipt Date: 20130603
  Transmission Date: 20140414
  Serious: Yes (Other)
  Sender: FDA-Public Use
  Company Number: US-BRISTOL-MYERS SQUIBB COMPANY-18935379

PATIENT
  Sex: Female

DRUGS (1)
  1. KENALOG INJ [Suspect]
     Indication: BRONCHOSPASM
     Dates: start: 201204

REACTIONS (2)
  - Necrosis [Unknown]
  - Neuralgia [Unknown]
